FAERS Safety Report 14018299 (Version 6)
Quarter: 2022Q4

REPORT INFORMATION
  Report Type: Spontaneous
  Country: JP (occurrence: JP)
  Receive Date: 20170928
  Receipt Date: 20221216
  Transmission Date: 20230113
  Serious: Yes (Death, Hospitalization, Disabling, Other)
  Sender: FDA-Public Use
  Company Number: JP-DSJP-DSJ-2017-139178

PATIENT
  Sex: Female

DRUGS (12)
  1. DENOSUMAB [Suspect]
     Active Substance: DENOSUMAB
     Indication: Metastases to bone
     Dosage: 120 MILLIGRAM, UNK
     Route: 058
     Dates: start: 20131018, end: 20160204
  2. DENOSUMAB [Suspect]
     Active Substance: DENOSUMAB
     Dosage: 120 MILLIGRAM, UNK
     Route: 058
     Dates: start: 20170202
  3. ZOMETA [Suspect]
     Active Substance: ZOLEDRONIC ACID
     Indication: Product used for unknown indication
     Dosage: UNK, TOTAL 3 TIMES
     Route: 065
     Dates: start: 20130806, end: 20130917
  4. DECADRON [Suspect]
     Active Substance: DEXAMETHASONE
     Indication: Metastases to meninges
     Dosage: 4 MG, QD
     Route: 048
     Dates: start: 20150710, end: 20150716
  5. DECADRON [Suspect]
     Active Substance: DEXAMETHASONE
     Dosage: 2 MG, QD
     Route: 048
     Dates: start: 20150717, end: 20150723
  6. DECADRON [Suspect]
     Active Substance: DEXAMETHASONE
     Dosage: 1 MG, QD
     Route: 048
     Dates: start: 20150724, end: 20150811
  7. DECADRON [Suspect]
     Active Substance: DEXAMETHASONE
     Dosage: 0.5 MG, QD
     Route: 048
     Dates: start: 20150812
  8. ANASTROZOLE [Concomitant]
     Active Substance: ANASTROZOLE
     Dosage: UNK
     Route: 065
  9. AFINITOR [Concomitant]
     Active Substance: EVEROLIMUS
     Indication: Metastases to bone
     Dosage: 10 MILLIGRAM, QD
     Route: 048
     Dates: start: 20150725
  10. AROMASIN [Concomitant]
     Active Substance: EXEMESTANE
     Indication: Metastases to bone
     Dosage: 25 MILLIGRAM, QD
     Route: 048
     Dates: start: 20150725
  11. CALCIUM CARBONATE\CHOLECALCIFEROL\MAGNESIUM CARBONATE [Concomitant]
     Active Substance: CALCIUM CARBONATE\CHOLECALCIFEROL\MAGNESIUM CARBONATE
     Indication: Metastases to bone
     Dosage: 2 DOSAGE FORM, QD
     Route: 048
     Dates: start: 20131018, end: 20160302
  12. CALCIUM CARBONATE\CHOLECALCIFEROL\MAGNESIUM CARBONATE [Concomitant]
     Active Substance: CALCIUM CARBONATE\CHOLECALCIFEROL\MAGNESIUM CARBONATE
     Dosage: 2 DOSAGE FORM
     Route: 048
     Dates: start: 20170202

REACTIONS (5)
  - Osteonecrosis of jaw [Recovered/Resolved]
  - Disease progression [Fatal]
  - Metastases to meninges [Unknown]
  - Intracranial pressure increased [Unknown]
  - Periodontitis [Recovered/Resolved]

NARRATIVE: CASE EVENT DATE: 20150422
